FAERS Safety Report 13195444 (Version 1)
Quarter: 2017Q1

REPORT INFORMATION
  Report Type: Spontaneous
  Country: JP (occurrence: JP)
  Receive Date: 20170208
  Receipt Date: 20170208
  Transmission Date: 20170428
  Serious: Yes (Other)
  Sender: FDA-Public Use
  Company Number: JP-BRISTOL-MYERS SQUIBB COMPANY-BMS-2016-064988

PATIENT
  Age: 52 Year
  Sex: Female

DRUGS (1)
  1. OPDIVO [Suspect]
     Active Substance: NIVOLUMAB
     Indication: NON-SMALL CELL LUNG CANCER
     Dosage: 4 UNK, UNK
     Route: 041
     Dates: end: 201607

REACTIONS (7)
  - Diarrhoea [Recovering/Resolving]
  - Myalgia [Recovering/Resolving]
  - Cellulitis [Recovering/Resolving]
  - Herpes zoster [Unknown]
  - Weight increased [Unknown]
  - Muscular weakness [Unknown]
  - Arthralgia [Recovered/Resolved]

NARRATIVE: CASE EVENT DATE: 2016
